FAERS Safety Report 4284076-0 (Version None)
Quarter: 2004Q1

REPORT INFORMATION
  Report Type: 
  Country: None (occurrence: None)
  Receive Date: 20040130
  Receipt Date: 20040117
  Transmission Date: 20041129
  Serious: Yes (Other)
  Sender: FDA-Public Use
  Company Number: US-JNJFOC-20040103615

PATIENT
  Age: 73 Year
  Sex: Female
  Weight: 52.6173 kg

DRUGS (8)
  1. REMICADE [Suspect]
     Indication: RHEUMATOID ARTHRITIS
     Dosage: INTRAVENOUS
     Route: 042
  2. FLEXORIL (CYCLOBENZAPRINE HYDROCHLORIDE) [Concomitant]
  3. LAVOXIL (ALL OTHER THERAPEUTIC PRODUCTS) [Concomitant]
  4. METHOTREXATE [Concomitant]
  5. LODINE [Concomitant]
  6. PREDNISONE [Concomitant]
  7. IRON SUPPLEMENT (IRON) [Concomitant]
  8. FOLIC ACID [Concomitant]

REACTIONS (3)
  - HEADACHE [None]
  - SINUSITIS [None]
  - SYSTEMIC LUPUS ERYTHEMATOSUS [None]
